FAERS Safety Report 6135500-X (Version None)
Quarter: 2009Q1

REPORT INFORMATION
  Report Type: 
  Country: None (occurrence: None)
  Receive Date: 20090327
  Receipt Date: 20090323
  Transmission Date: 20090719
  Serious: Yes (Life-Threatening, Hospitalization)
  Sender: FDA-Public Use
  Company Number: B0557959A

PATIENT
  Sex: Male
  Weight: 34.5 kg

DRUGS (1)
  1. RELENZA [Suspect]
     Indication: INFLUENZA
     Route: 055
     Dates: start: 20090130

REACTIONS (6)
  - COUGH [None]
  - DEPRESSED LEVEL OF CONSCIOUSNESS [None]
  - DYSPNOEA [None]
  - PALLOR [None]
  - PHARYNGEAL OEDEMA [None]
  - WHEEZING [None]
